FAERS Safety Report 13845122 (Version 4)
Quarter: 2018Q1

REPORT INFORMATION
  Report Type: Spontaneous
  Country: JP (occurrence: JP)
  Receive Date: 20170808
  Receipt Date: 20180301
  Transmission Date: 20180508
  Serious: Yes (Other)
  Sender: FDA-Public Use
  Company Number: JP-009507513-1707JPN000620J

PATIENT
  Age: 71 Year
  Sex: Male
  Weight: 50 kg

DRUGS (1)
  1. KEYTRUDA [Suspect]
     Active Substance: PEMBROLIZUMAB
     Indication: SQUAMOUS CELL CARCINOMA OF LUNG
     Dosage: 200 MG, Q3W
     Route: 041
     Dates: start: 20170417, end: 20170731

REACTIONS (1)
  - Small intestine carcinoma [Not Recovered/Not Resolved]

NARRATIVE: CASE EVENT DATE: 20170425
